FAERS Safety Report 8155127-8 (Version None)
Quarter: 2012Q1

REPORT INFORMATION
  Report Type: 
  Country: None (occurrence: None)
  Receive Date: 20120221
  Receipt Date: 20120213
  Transmission Date: 20120608
  Serious: Yes (Other)
  Sender: FDA-Public Use
  Company Number: CO-ELI_LILLY_AND_COMPANY-CO201202003944

PATIENT
  Age: 58 Year
  Sex: Male

DRUGS (3)
  1. BYETTA [Suspect]
     Indication: TYPE 2 DIABETES MELLITUS
     Dosage: 5 UG, QD
     Route: 058
     Dates: start: 20120116, end: 20120205
  2. METFORMIN HCL [Concomitant]
  3. ALLOPURINOL [Concomitant]

REACTIONS (1)
  - ARRHYTHMIA [None]
